FAERS Safety Report 9286078 (Version 1)
Quarter: 2013Q2

REPORT INFORMATION
  Report Type: Spontaneous
  Country: FR (occurrence: FR)
  Receive Date: 20130513
  Receipt Date: 20130513
  Transmission Date: 20140414
  Serious: Yes (Hospitalization)
  Sender: FDA-Public Use
  Company Number: FR-UCBSA-085079

PATIENT
  Age: 39 Year
  Sex: Female

DRUGS (7)
  1. KEPPRA [Suspect]
     Indication: STATUS EPILEPTICUS
     Dosage: UNKNOWN
     Route: 048
     Dates: start: 20121009, end: 20121020
  2. AZANTAC [Suspect]
     Dates: start: 20121009, end: 20121021
  3. URBANYL [Suspect]
     Indication: STATUS EPILEPTICUS
     Route: 048
     Dates: start: 20121009, end: 20121018
  4. ULTRAVIST [Suspect]
     Indication: COMPUTERISED TOMOGRAM
     Dosage: 1 INJECTION OF 300 MG
     Route: 042
     Dates: start: 20121012, end: 20121012
  5. CIFLOX [Suspect]
     Indication: LUNG DISORDER
     Dates: start: 20121016, end: 20121021
  6. FORTUM [Suspect]
     Indication: LUNG DISORDER
     Dosage: INTRAVENOUS INFUSION
     Route: 042
     Dates: start: 20121016, end: 20121018
  7. GENTAMYCINE [Suspect]
     Indication: LUNG DISORDER
     Route: 042
     Dates: start: 20121018, end: 20121020

REACTIONS (2)
  - Lung disorder [Unknown]
  - Drug reaction with eosinophilia and systemic symptoms [Recovered/Resolved]
